FAERS Safety Report 14651743 (Version 2)
Quarter: 2018Q2

REPORT INFORMATION
  Report Type: Spontaneous
  Country: US (occurrence: US)
  Receive Date: 20180317
  Receipt Date: 20180627
  Transmission Date: 20180711
  Serious: No
  Sender: FDA-Public Use
  Company Number: US-LEO PHARMA-307698

PATIENT
  Age: 62 Year
  Sex: Female

DRUGS (3)
  1. VITAMINS [Concomitant]
     Active Substance: VITAMINS
     Indication: PRODUCT USED FOR UNKNOWN INDICATION
  2. PICATO [Suspect]
     Active Substance: INGENOL MEBUTATE
     Indication: PROPHYLAXIS
  3. PICATO [Suspect]
     Active Substance: INGENOL MEBUTATE
     Indication: ACTINIC KERATOSIS
     Route: 061
     Dates: start: 20180222, end: 20180224

REACTIONS (5)
  - Application site burn [Recovered/Resolved]
  - Application site exfoliation [Recovered/Resolved]
  - Application site erosion [Recovered/Resolved]
  - Application site erythema [Recovered/Resolved]
  - Product use in unapproved indication [Unknown]

NARRATIVE: CASE EVENT DATE: 20180226
